FAERS Safety Report 4483394-0 (Version None)
Quarter: 2004Q4

REPORT INFORMATION
  Report Type: 
  Country: None (occurrence: None)
  Receive Date: 20041020
  Receipt Date: 20041014
  Transmission Date: 20050328
  Serious: Yes (Hospitalization, Other)
  Sender: FDA-Public Use
  Company Number: HQWYE773414OCT04

PATIENT
  Age: 21 Year
  Sex: Female

DRUGS (1)
  1. OROKEN (CEFIXIME) [Suspect]
     Indication: TONSILLITIS
     Dosage: ORAL
     Route: 048
     Dates: start: 20040323, end: 20040301

REACTIONS (7)
  - ASCITES [None]
  - CLOSTRIDIUM COLITIS [None]
  - GENERALISED OEDEMA [None]
  - HYPOALBUMINAEMIA [None]
  - LEUKOCYTOSIS [None]
  - PLEURAL EFFUSION [None]
  - RESPIRATORY DISORDER [None]
